FAERS Safety Report 6810390-8 (Version None)
Quarter: 2010Q2

REPORT INFORMATION
  Report Type: 
  Country: None (occurrence: None)
  Receive Date: 20100630
  Receipt Date: 20100616
  Transmission Date: 20101027
  Serious: Yes (Other)
  Sender: FDA-Public Use
  Company Number: PHHY2010US39581

PATIENT
  Sex: Male

DRUGS (3)
  1. GLEEVEC [Suspect]
     Indication: CHRONIC MYELOID LEUKAEMIA
     Dosage: 400 MG EVERY DAY
     Dates: start: 20000101
  2. GLEEVEC [Suspect]
     Dosage: UNK
     Dates: start: 20100615
  3. COUMADIN [Concomitant]

REACTIONS (2)
  - MITRAL VALVE REPAIR [None]
  - MUSCLE SPASMS [None]
